FAERS Safety Report 4388231-0 (Version None)
Quarter: 2004Q2

REPORT INFORMATION
  Report Type: 
  Country: None (occurrence: None)
  Receive Date: 20040625
  Receipt Date: 20040614
  Transmission Date: 20050107
  Serious: Yes (Life-Threatening, Hospitalization)
  Sender: FDA-Public Use
  Company Number: 203316

PATIENT
  Age: 75 Year
  Sex: Female
  Weight: 57 kg

DRUGS (3)
  1. CATHFLO ACTIVASE [Suspect]
     Indication: ARTERIAL OCCLUSIVE DISEASE
     Dosage: 1 MG/HR, SINGLE, INTRAVENOUS
     Route: 042
     Dates: start: 20031111, end: 20031111
  2. ASPIRIN EC (ASPIRIN) [Concomitant]
  3. HEPARIN [Concomitant]

REACTIONS (3)
  - BLOOD FIBRINOGEN DECREASED [None]
  - HAEMOGLOBIN DECREASED [None]
  - PHARMACEUTICAL PRODUCT COMPLAINT [None]
